FAERS Safety Report 6882957-2 (Version None)
Quarter: 2010Q3

REPORT INFORMATION
  Report Type: 
  Country: None (occurrence: None)
  Receive Date: 20100727
  Receipt Date: 20100709
  Transmission Date: 20110219
  Serious: Yes (Hospitalization)
  Sender: FDA-Public Use
  Company Number: 015726

PATIENT
  Sex: Female

DRUGS (8)
  1. KEPPRA [Suspect]
     Indication: EPILEPSY
     Dosage: (250 MG BID ORAL)
     Route: 048
     Dates: start: 20100618
  2. KALETRA  /01506501/ [Concomitant]
  3. ABACAVIR SULFATE AND LAMIVUDINE [Concomitant]
  4. KEETALGIN [Concomitant]
  5. FEMOSTON [Concomitant]
  6. CALCIMAGON-D3 [Concomitant]
  7. SERESTA [Concomitant]
  8. OTHER ANTIVIRALS [Concomitant]

REACTIONS (2)
  - ASTHENIA [None]
  - BRADYCARDIA [None]
